FAERS Safety Report 4350897-9 (Version None)
Quarter: 2004Q2

REPORT INFORMATION
  Report Type: 
  Country: None (occurrence: None)
  Receive Date: 20040428
  Receipt Date: 20040416
  Transmission Date: 20050107
  Serious: Yes (Other)
  Sender: FDA-Public Use
  Company Number: 2004026311

PATIENT
  Age: 36 Year
  Sex: Female
  Weight: 61.2356 kg

DRUGS (8)
  1. NEURONTIN [Suspect]
     Indication: PAIN IN EXTREMITY
     Dosage: 1800-2700MG (DAILY), ORAL
     Route: 048
     Dates: start: 20021101, end: 20040401
  2. ALL OTHER NON-THERAPEUTIC PRODUCTS (ALL OTHER NON-THERAPEUTIC PRODUCTS [Suspect]
     Indication: ILL-DEFINED DISORDER
     Dosage: ORAL
     Route: 048
     Dates: start: 20031001
  3. VITAMINS (VITAMINS) [Suspect]
     Indication: VITAMIN SUPPLEMENTATION
     Dates: start: 20040401
  4. TRIAMCINOLONE ACETONIDE [Concomitant]
  5. LORAZEPAM [Concomitant]
  6. ALL OTHER THERAPEUTIC PRODUCTS (ALL OTHER PRODUCTS) [Concomitant]
  7. LANSOPRAZOLE [Concomitant]
  8. RANITIDINE HYDROCHLORIDE [Concomitant]

REACTIONS (5)
  - ABDOMINAL PAIN UPPER [None]
  - DISEASE RECURRENCE [None]
  - DYSPEPSIA [None]
  - FOOD POISONING [None]
  - GASTRITIS [None]
